FAERS Safety Report 5984681-7 (Version None)
Quarter: 2008Q4

REPORT INFORMATION
  Report Type: 
  Country: None (occurrence: None)
  Receive Date: 20081202
  Receipt Date: 20081117
  Transmission Date: 20090506
  Serious: Yes (Other)
  Sender: FDA-Public Use
  Company Number: 2008S1020102

PATIENT
  Age: 57 Year
  Sex: Male

DRUGS (13)
  1. OXYBUTYNIN CHLORIDE [Suspect]
     Indication: POLLAKIURIA
     Dosage: 10 MG; DAILY
  2. PARACETAMOL (CON.) [Concomitant]
  3. IBUPROFEN (CON.) [Concomitant]
  4. ATENOLOL (CON.) [Concomitant]
  5. ASPIRIN (CON.) [Concomitant]
  6. AMLODIPINE (CON.) [Concomitant]
  7. CODEINE PHOSPHATE (CON.) [Concomitant]
  8. NITROGLYCERIN (CON.) [Concomitant]
  9. LISINOPRIL (CON.) [Concomitant]
  10. METOCLOPRAMIDE (CON.) [Concomitant]
  11. PROCHLORPERAZINE (CON.) [Concomitant]
  12. RIZATRIPTAN (CON.) [Concomitant]
  13. SIMVASTATIN (CON.) [Concomitant]

REACTIONS (5)
  - DRUG ERUPTION [None]
  - LICHENOID KERATOSIS [None]
  - LIP ULCERATION [None]
  - ORAL HERPES [None]
  - URGE INCONTINENCE [None]
